FAERS Safety Report 5109345-3 (Version None)
Quarter: 2006Q4

REPORT INFORMATION
  Report Type: 
  Country: None (occurrence: None)
  Receive Date: 20060918
  Receipt Date: 20060905
  Transmission Date: 20070319
  Serious: Yes (Life-Threatening, Hospitalization)
  Sender: FDA-Public Use
  Company Number: B0436967A

PATIENT
  Sex: Male

DRUGS (2)
  1. FLUTICASONE+SALMETEROL INHALER (FLUTICASONE+SALMETEROL) [Suspect]
     Indication: ASTHMA
     Dosage: SEE DOSAGE TEXT / INHALED
     Route: 055
  2. ALBUTEROL SPIROS [Concomitant]

REACTIONS (5)
  - ASTHMA [None]
  - BRONCHOSPASM [None]
  - DYSPNOEA [None]
  - FORCED EXPIRATORY VOLUME DECREASED [None]
  - HYPOXIA [None]
